FAERS Safety Report 19709049 (Version 2)
Quarter: 2021Q3

REPORT INFORMATION
  Report Type: Spontaneous
  Country: US (occurrence: US)
  Receive Date: 20210816
  Receipt Date: 20210827
  Transmission Date: 20211014
  Serious: Yes (Other)
  Sender: FDA-Public Use
  Company Number: US-PFIZER INC-202100998434

PATIENT
  Age: 55 Year
  Sex: Female
  Weight: 73.48 kg

DRUGS (1)
  1. CHANTIX [Suspect]
     Active Substance: VARENICLINE TARTRATE
     Indication: SMOKING CESSATION THERAPY
     Dosage: UNK
     Dates: start: 20191103

REACTIONS (2)
  - Recalled product administered [Unknown]
  - Rectal cancer [Recovering/Resolving]

NARRATIVE: CASE EVENT DATE: 20200217
